FAERS Safety Report 6825870-9 (Version None)
Quarter: 2010Q3

REPORT INFORMATION
  Report Type: 
  Country: None (occurrence: None)
  Receive Date: 20100709
  Receipt Date: 20100701
  Transmission Date: 20110219
  Serious: Yes (Death)
  Sender: FDA-Public Use
  Company Number: US-ASTRAZENECA-2007UW22648

PATIENT
  Age: 12409 Day
  Sex: Female
  Weight: 86.2 kg

DRUGS (33)
  1. SEROQUEL [Suspect]
     Indication: DEPRESSION
     Dosage: 25-400 MG
     Route: 048
     Dates: start: 19990304, end: 20020321
  2. SEROQUEL [Suspect]
     Dosage: 400 TO 800MG
     Route: 048
     Dates: start: 20011018, end: 20070802
  3. SEROQUEL [Suspect]
     Dosage: 400-800 MG
     Route: 048
     Dates: start: 20030211, end: 20080101
  4. METOCLOPRAMIDE [Concomitant]
  5. DICYCLOMINE [Concomitant]
  6. TOPAMAX [Concomitant]
  7. ZOCOR [Concomitant]
  8. ZESTRIL [Concomitant]
  9. XANAX [Concomitant]
  10. CYMBALTA [Concomitant]
  11. AMITRIPTYLINE [Concomitant]
  12. NEURONTIN [Concomitant]
  13. ATIVAN [Concomitant]
  14. LORTAB [Concomitant]
  15. SONATA [Concomitant]
  16. AMBIEN [Concomitant]
  17. OXYCONTIN [Concomitant]
  18. VALIUM [Concomitant]
  19. CELEXA [Concomitant]
  20. LORAZEPAM [Concomitant]
  21. MAXALT [Concomitant]
  22. HYDROCHLOROTHIAZIDE [Concomitant]
  23. ESTRATEST [Concomitant]
  24. ZYBAN [Concomitant]
  25. ZOLOFT [Concomitant]
  26. ROZEREM [Concomitant]
  27. COLACE [Concomitant]
  28. ATACAND [Concomitant]
  29. DOXEPIN HCL [Concomitant]
  30. TEMAZEPAM [Concomitant]
  31. PAXIL [Concomitant]
  32. VISTARIL [Concomitant]
  33. CARISOPRODOL [Concomitant]

REACTIONS (2)
  - DEATH [None]
  - TYPE 2 DIABETES MELLITUS [None]
